FAERS Safety Report 11650527 (Version 5)
Quarter: 2016Q1

REPORT INFORMATION
  Report Type: Report from Study
  Country: NL (occurrence: NL)
  Receive Date: 20151021
  Receipt Date: 20160125
  Transmission Date: 20160525
  Serious: Yes (Other)
  Sender: FDA-Public Use
  Company Number: NL-ABBVIE-15P-114-1482630-00

PATIENT
  Age: 74 Year
  Sex: Female

DRUGS (3)
  1. DUODOPA [Suspect]
     Active Substance: CARBIDOPA\LEVODOPA
     Dosage: 20/5MG/ML. MD: 6.2 CD: 1.9 ED 0.6
     Route: 050
     Dates: start: 20151226, end: 20151227
  2. DUODOPA [Suspect]
     Active Substance: CARBIDOPA\LEVODOPA
     Indication: PARKINSON^S DISEASE
     Dosage: 20/5MG/ML. MD: 6.2 CD: 1.9 ED 0.6
     Route: 050
     Dates: start: 20100113
  3. DUODOPA [Suspect]
     Active Substance: CARBIDOPA\LEVODOPA
     Dosage: 20/5MG/ML. MD: 6.2 CD: 1.8 ED 0.6
     Route: 050
     Dates: start: 20151227

REACTIONS (15)
  - Hyperkinesia [Recovered/Resolved]
  - Restless legs syndrome [Not Recovered/Not Resolved]
  - Fall [Not Recovered/Not Resolved]
  - Dizziness [Not Recovered/Not Resolved]
  - Upper limb fracture [Not Recovered/Not Resolved]
  - Musculoskeletal pain [Not Recovered/Not Resolved]
  - On and off phenomenon [Not Recovered/Not Resolved]
  - Tremor [Not Recovered/Not Resolved]
  - Exophthalmos [Not Recovered/Not Resolved]
  - Fear of falling [Not Recovered/Not Resolved]
  - Tremor [Not Recovered/Not Resolved]
  - Hyperkinesia [Not Recovered/Not Resolved]
  - Hyperkinesia [Not Recovered/Not Resolved]
  - Akathisia [Not Recovered/Not Resolved]
  - Balance disorder [Not Recovered/Not Resolved]

NARRATIVE: CASE EVENT DATE: 201512
